FAERS Safety Report 5640699-5 (Version None)
Quarter: 2008Q1

REPORT INFORMATION
  Report Type: 
  Country: None (occurrence: None)
  Receive Date: 20080226
  Receipt Date: 20080226
  Transmission Date: 20080703
  Serious: No
  Sender: FDA-Public Use
  Company Number: None

PATIENT
  Age: 46 Year
  Sex: Male

DRUGS (2)
  1. LYRICA [Suspect]
     Dosage: CAPSULE
  2. BACLOFEN [Suspect]
     Dosage: TABLET

REACTIONS (1)
  - MEDICATION ERROR [None]
